FAERS Safety Report 6706975-X (Version None)
Quarter: 2010Q2

REPORT INFORMATION
  Report Type: 
  Country: None (occurrence: None)
  Receive Date: 20100503
  Receipt Date: 20100423
  Transmission Date: 20101027
  Serious: Yes (Other)
  Sender: FDA-Public Use
  Company Number: GXKR2010KR04230

PATIENT
  Age: 52 Year
  Sex: Male

DRUGS (4)
  1. CYCLOSPORINE [Suspect]
     Indication: IMMUNOSUPPRESSION
     Dosage: 250 MG/DAY
     Route: 065
  2. CYCLOSPORINE [Suspect]
     Dosage: 50 MG/DAY
     Route: 065
  3. MYCOPHENOLATE MOFETIL (NGX) [Suspect]
     Indication: IMMUNOSUPPRESSION
     Dosage: 500 MG/DAY
     Route: 065
  4. PREDNISOLONE [Suspect]
     Indication: IMMUNOSUPPRESSION
     Dosage: 5 MG/DAY
     Route: 065

REACTIONS (6)
  - B-CELL LYMPHOMA [None]
  - CHRONIC TONSILLITIS [None]
  - COLECTOMY [None]
  - COLONIC POLYP [None]
  - LYMPHOPROLIFERATIVE DISORDER [None]
  - TONSILLECTOMY [None]
